FAERS Safety Report 16911549 (Version 3)
Quarter: 2019Q4

REPORT INFORMATION
  Report Type: Spontaneous
  Country: US (occurrence: US)
  Receive Date: 20191013
  Receipt Date: 20191205
  Transmission Date: 20200122
  Serious: No
  Sender: FDA-Public Use
  Company Number: US-009507513-1909USA013821

PATIENT
  Age: 23 Year
  Sex: Female
  Weight: 81.95 kg

DRUGS (2)
  1. NEXPLANON [Suspect]
     Active Substance: ETONOGESTREL
     Indication: CONTRACEPTION
     Dosage: 1 IMPLANT ON THE LEFT ARM EVERY 3 YEARS
     Route: 059
     Dates: start: 20190429, end: 20190926
  2. NEXPLANON [Suspect]
     Active Substance: ETONOGESTREL
     Dosage: 1 IMPLANT ON THE LEFT ARM EVERY 3 YEARS
     Route: 059
     Dates: start: 20190926

REACTIONS (3)
  - Device deployment issue [Recovered/Resolved]
  - No adverse event [Unknown]
  - Device breakage [Recovered/Resolved]

NARRATIVE: CASE EVENT DATE: 20190429
